FAERS Safety Report 9720503 (Version 2)
Quarter: 2014Q1

REPORT INFORMATION
  Report Type: Spontaneous
  Country: BE (occurrence: BE)
  Receive Date: 20131129
  Receipt Date: 20140121
  Transmission Date: 20141002
  Serious: Yes (Death, Hospitalization, Other)
  Sender: FDA-Public Use
  Company Number: BE-JNJFOC-20131116493

PATIENT
  Age: 76 Year
  Sex: Male

DRUGS (9)
  1. XARELTO [Suspect]
     Indication: CEREBROVASCULAR ACCIDENT PROPHYLAXIS
     Dosage: 10/15 MG
     Route: 048
     Dates: start: 201308, end: 20130820
  2. XARELTO [Suspect]
     Indication: CEREBROVASCULAR ACCIDENT PROPHYLAXIS
     Route: 048
     Dates: start: 2013
  3. XARELTO [Suspect]
     Indication: ATRIAL FIBRILLATION
     Dosage: 10/15 MG
     Route: 048
     Dates: start: 201308, end: 20130820
  4. XARELTO [Suspect]
     Indication: ATRIAL FIBRILLATION
     Route: 048
     Dates: start: 2013
  5. ASAFLOW [Concomitant]
     Route: 065
  6. ZOLPIDEM [Concomitant]
     Route: 065
  7. REDOMEX [Concomitant]
     Route: 065
  8. MOXONIDINE [Concomitant]
     Route: 065
  9. LODOZ [Concomitant]
     Route: 065

REACTIONS (4)
  - Death [Fatal]
  - Cerebral thrombosis [Unknown]
  - Hemiplegia [Unknown]
  - Incorrect dose administered [Unknown]
